FAERS Safety Report 15668261 (Version 2)
Quarter: 2019Q1

REPORT INFORMATION
  Report Type: Report from Study
  Country: JP (occurrence: JP)
  Receive Date: 20181129
  Receipt Date: 20190208
  Transmission Date: 20190417
  Serious: Yes (Hospitalization, Other)
  Sender: FDA-Public Use
  Company Number: JP-BRISTOL-MYERS SQUIBB COMPANY-BMS-2018-111947

PATIENT
  Age: 80 Year
  Sex: Female

DRUGS (2)
  1. PAZOPANIB HYDROCHLORIDE [Suspect]
     Active Substance: PAZOPANIB HYDROCHLORIDE
     Indication: CLEAR CELL SARCOMA OF SOFT TISSUE
     Dosage: UNK
     Route: 065
  2. NIVOLUMAB [Suspect]
     Active Substance: NIVOLUMAB
     Indication: CLEAR CELL SARCOMA OF SOFT TISSUE
     Route: 041

REACTIONS (3)
  - Product use in unapproved indication [Unknown]
  - Disseminated intravascular coagulation [Recovered/Resolved]
  - Drug ineffective [Unknown]
